FAERS Safety Report 7213733-9 (Version None)
Quarter: 2011Q1

REPORT INFORMATION
  Report Type: 
  Country: None (occurrence: None)
  Receive Date: 20110106
  Receipt Date: 20101228
  Transmission Date: 20110831
  Serious: Yes (Hospitalization)
  Sender: FDA-Public Use
  Company Number: NL-MEDIMMUNE-MEDI-0012129

PATIENT
  Sex: Male

DRUGS (2)
  1. SYNAGIS [Suspect]
     Route: 030
     Dates: start: 20101130, end: 20101130
  2. SYNAGIS [Suspect]
     Route: 030
     Dates: start: 20101228, end: 20101228

REACTIONS (4)
  - DYSPNOEA [None]
  - CRYING [None]
  - NASOPHARYNGITIS [None]
  - RESPIRATORY SYNCYTIAL VIRUS INFECTION [None]
